FAERS Safety Report 17891356 (Version 1)
Quarter: 2020Q2

REPORT INFORMATION
  Report Type: Spontaneous
  Country: ES (occurrence: ES)
  Receive Date: 20200612
  Receipt Date: 20200612
  Transmission Date: 20200714
  Serious: Yes (Death, Other)
  Sender: FDA-Public Use
  Company Number: ES-BAYER-2020-107590

PATIENT
  Age: 49 Year
  Sex: Male

DRUGS (1)
  1. STIVARGA [Suspect]
     Active Substance: REGORAFENIB
     Indication: COLORECTAL CANCER METASTATIC
     Dosage: 160 MG, QD
     Route: 048
     Dates: start: 201008, end: 201301

REACTIONS (3)
  - Lung neoplasm malignant [None]
  - Palmar-plantar erythrodysaesthesia syndrome [None]
  - Hepatic cancer [None]

NARRATIVE: CASE EVENT DATE: 201301
